FAERS Safety Report 14619323 (Version 3)
Quarter: 2018Q1

REPORT INFORMATION
  Report Type: Spontaneous
  Country: CN (occurrence: CN)
  Receive Date: 20180309
  Receipt Date: 20180323
  Transmission Date: 20180509
  Serious: Yes (Other)
  Sender: FDA-Public Use
  Company Number: CN-JNJFOC-20180238137

PATIENT
  Sex: Female

DRUGS (3)
  1. SPORANOX [Suspect]
     Active Substance: ITRACONAZOLE
     Indication: TINEA INFECTION
     Route: 065
     Dates: start: 20180123
  2. DAKTARIN GOLD [Suspect]
     Active Substance: KETOCONAZOLE
     Indication: TINEA INFECTION
     Route: 065
  3. PEVISONE [Suspect]
     Active Substance: ECONAZOLE
     Indication: TINEA INFECTION
     Route: 065
     Dates: start: 201802

REACTIONS (8)
  - Fall [Unknown]
  - Drug ineffective [Unknown]
  - Haemorrhage subcutaneous [Unknown]
  - Oedema peripheral [Unknown]
  - Dizziness [Unknown]
  - Off label use [Unknown]
  - Self-medication [Unknown]
  - Oedema [Not Recovered/Not Resolved]

NARRATIVE: CASE EVENT DATE: 20180123
